FAERS Safety Report 10086476 (Version 2)
Quarter: 2014Q2

REPORT INFORMATION
  Report Type: Spontaneous
  Country: US (occurrence: US)
  Receive Date: 20140418
  Receipt Date: 20140613
  Transmission Date: 20141212
  Serious: Yes (Other)
  Sender: FDA-Public Use
  Company Number: US-GILEAD-2014-0100074

PATIENT
  Age: 77 Year
  Sex: Female

DRUGS (6)
  1. LETAIRIS [Suspect]
     Indication: PULMONARY ARTERIAL HYPERTENSION
     Dosage: 10 MG, QD
     Route: 065
     Dates: start: 20140411, end: 20140416
  2. LETAIRIS [Suspect]
     Dosage: 5 UNK, UNK
     Route: 065
  3. LETAIRIS [Suspect]
     Dosage: 10 UNK, UNK
     Route: 065
     Dates: start: 20140310
  4. LISINOPRIL [Concomitant]
  5. SERTRALINE [Concomitant]
  6. OXYCONTIN [Concomitant]

REACTIONS (6)
  - Atrial fibrillation [Unknown]
  - Atrial flutter [Unknown]
  - Epistaxis [Not Recovered/Not Resolved]
  - Hypotension [Not Recovered/Not Resolved]
  - Pyrexia [Unknown]
  - Swelling face [Not Recovered/Not Resolved]
